FAERS Safety Report 16349767 (Version 1)
Quarter: 2019Q2

REPORT INFORMATION
  Report Type: Spontaneous
  Country: US (occurrence: US)
  Receive Date: 20190418
  Receipt Date: 20190418
  Transmission Date: 20190711
  Serious: Yes (Disabling)
  Sender: FDA-Public Use
  Company Number: None

PATIENT
  Age: 61 Year
  Sex: Female
  Weight: 54.88 kg

DRUGS (4)
  1. PROGESTERONE 100MG [Concomitant]
     Active Substance: PROGESTERONE
  2. ESTRADIAL PATCH [Concomitant]
  3. VITAMIN D3 [Concomitant]
     Active Substance: CHOLECALCIFEROL
  4. TRINTELLIX [Suspect]
     Active Substance: VORTIOXETINE HYDROBROMIDE
     Indication: DEPRESSION
     Dosage: ?          QUANTITY:1 DF DOSAGE FORM;?
     Route: 048
     Dates: start: 20180808, end: 20190220

REACTIONS (9)
  - Insomnia [None]
  - Nausea [None]
  - Amnesia [None]
  - Diarrhoea [None]
  - Vomiting [None]
  - Confusional state [None]
  - Pain in extremity [None]
  - Fatigue [None]
  - Headache [None]

NARRATIVE: CASE EVENT DATE: 20180808
